FAERS Safety Report 5321739-X (Version None)
Quarter: 2007Q2

REPORT INFORMATION
  Report Type: 
  Country: None (occurrence: None)
  Receive Date: 20070504
  Receipt Date: 20070423
  Transmission Date: 20071010
  Serious: Yes (Hospitalization)
  Sender: FDA-Public Use
  Company Number: 2007BI006615

PATIENT
  Age: 60 Year
  Sex: Female

DRUGS (26)
  1. AVONEX [Suspect]
     Indication: MULTIPLE SCLEROSIS
     Dosage: 30 UG;QW;IM
     Route: 030
     Dates: start: 20011015
  2. PAXIL [Concomitant]
  3. SINGULAIR [Concomitant]
  4. LASIX [Concomitant]
  5. MECLIZINE [Concomitant]
  6. AMANTADINE HCL [Concomitant]
  7. ADVAIR DISKUS 100/50 [Concomitant]
  8. ASPIRIN [Concomitant]
  9. FOSAMAX [Concomitant]
  10. MIGQUIN [Concomitant]
  11. PROCARDIA [Concomitant]
  12. METOPROLOL TARTRATE [Concomitant]
  13. PLAVIX [Concomitant]
  14. NASACORT AQ [Concomitant]
  15. ALBUTEROL [Concomitant]
  16. SIMVASTATIN [Concomitant]
  17. RELAFEN [Concomitant]
  18. MYTUSSIN [Concomitant]
  19. KLONOPIN [Concomitant]
  20. CENTRUM [Concomitant]
  21. VITAMIN B COMPLEX CAP [Concomitant]
  22. LISINOPRIL [Concomitant]
  23. ACETASOL [Concomitant]
  24. OMEPRAZOLE [Concomitant]
  25. BUTALBITAL COMPOUND [Concomitant]
  26. DETROL LA [Concomitant]

REACTIONS (1)
  - MYOCARDIAL INFARCTION [None]
